FAERS Safety Report 7352038-2 (Version None)
Quarter: 2011Q1

REPORT INFORMATION
  Report Type: 
  Country: None (occurrence: None)
  Receive Date: 20110315
  Receipt Date: 20110225
  Transmission Date: 20110831
  Serious: No
  Sender: FDA-Public Use
  Company Number: JP-ELI_LILLY_AND_COMPANY-JP201102005361

PATIENT
  Age: 70 Year
  Sex: Male

DRUGS (2)
  1. LEVITRA [Concomitant]
     Route: 048
  2. CIALIS [Suspect]
     Route: 048

REACTIONS (2)
  - VISUAL IMPAIRMENT [None]
  - DIZZINESS [None]
